FAERS Safety Report 12382293 (Version 5)
Quarter: 2017Q3

REPORT INFORMATION
  Report Type: Report from Study
  Country: BR (occurrence: BR)
  Receive Date: 20160518
  Receipt Date: 20170904
  Transmission Date: 20171127
  Serious: Yes (Hospitalization)
  Sender: FDA-Public Use
  Company Number: BR-BIOGEN-2016BI00238610

PATIENT
  Age: 47 Year
  Sex: Male

DRUGS (4)
  1. VITAMIN D [Concomitant]
     Active Substance: CHOLECALCIFEROL
     Indication: PRODUCT USED FOR UNKNOWN INDICATION
     Route: 065
     Dates: start: 201601, end: 2016
  2. TYSABRI [Suspect]
     Active Substance: NATALIZUMAB
     Indication: MULTIPLE SCLEROSIS
     Route: 042
     Dates: start: 20151228, end: 201603
  3. SERTRALINE [Concomitant]
     Active Substance: SERTRALINE HYDROCHLORIDE
     Indication: PRODUCT USED FOR UNKNOWN INDICATION
     Route: 065
  4. CORTISONE [Concomitant]
     Active Substance: CORTISONE\HYDROCORTISONE
     Indication: PREMEDICATION
     Dosage: 1 HOUR BEFORE INFUSION
     Route: 065

REACTIONS (11)
  - Osteoarthritis [Not Recovered/Not Resolved]
  - Laryngeal oedema [Recovered/Resolved]
  - Treatment failure [Unknown]
  - Seizure [Recovered/Resolved]
  - Vitamin D increased [Recovered/Resolved]
  - Temperature regulation disorder [Recovered/Resolved]
  - Dermatitis allergic [Recovered/Resolved]
  - Underdose [Recovered/Resolved]
  - Vitamin C increased [Recovered/Resolved]
  - Herpes zoster [Unknown]
  - Multiple sclerosis [Not Recovered/Not Resolved]

NARRATIVE: CASE EVENT DATE: 20160127
